FAERS Safety Report 9160713 (Version 1)
Quarter: 2013Q1

REPORT INFORMATION
  Report Type: Spontaneous
  Country: US (occurrence: None)
  Receive Date: 20130215
  Receipt Date: 20130215
  Transmission Date: 20140127
  Serious: Yes (Hospitalization)
  Sender: FDA-Public Use
  Company Number: 2013-00237

PATIENT
  Age: 52 Year
  Sex: Male

DRUGS (1)
  1. SERTRALINE (UNKNOWN) (SERTRALINE) [Suspect]
     Indication: DEPRESSION

REACTIONS (5)
  - Diffuse alveolar damage [None]
  - Pulmonary fibrosis [None]
  - Acute respiratory distress syndrome [None]
  - Sick sinus syndrome [None]
  - Respiratory failure [None]
